FAERS Safety Report 23093871 (Version 1)
Quarter: 2023Q4

REPORT INFORMATION
  Report Type: Spontaneous
  Country: DE (occurrence: DE)
  Receive Date: 20231023
  Receipt Date: 20231023
  Transmission Date: 20240110
  Serious: Yes (Hospitalization, Other)
  Sender: FDA-Public Use
  Company Number: DE-ABBVIE-5442642

PATIENT
  Age: 57 Year
  Sex: Female

DRUGS (2)
  1. ADALIMUMAB [Suspect]
     Active Substance: ADALIMUMAB\ISOPROPYL ALCOHOL
     Indication: Rheumatoid arthritis
     Dosage: UNK
     Route: 058
     Dates: start: 2020
  2. PREDNISOLONE [Concomitant]
     Active Substance: PREDNISOLONE
     Indication: Rheumatoid arthritis
     Dosage: UNK

REACTIONS (14)
  - Whipple^s disease [Unknown]
  - Polyarthritis [Unknown]
  - Synovitis [Unknown]
  - Gamma-glutamyltransferase increased [Unknown]
  - Hypergammaglobulinaemia [Unknown]
  - Inflammatory marker increased [Unknown]
  - Red blood cell sedimentation rate increased [Unknown]
  - Hypoalbuminaemia [Unknown]
  - Vitamin D deficiency [Unknown]
  - C-reactive protein increased [Unknown]
  - Spinal pain [Unknown]
  - Musculoskeletal disorder [Unknown]
  - Back pain [Unknown]
  - Arthritis [Unknown]

NARRATIVE: CASE EVENT DATE: 20210301
